FAERS Safety Report 8021329-4 (Version None)
Quarter: 2011Q4

REPORT INFORMATION
  Report Type: 
  Country: None (occurrence: None)
  Receive Date: 20111229
  Receipt Date: 20111215
  Transmission Date: 20120403
  Serious: Yes (Other)
  Sender: FDA-Public Use
  Company Number: 2011P1011032

PATIENT
  Age: 47 Year
  Sex: Male
  Weight: 122.4712 kg

DRUGS (27)
  1. SPIRIVA [Concomitant]
  2. INVEGA [Concomitant]
  3. CYMBALTA [Concomitant]
  4. FUROSEMIDE [Concomitant]
  5. FLUTICASONE FUROATE [Concomitant]
  6. KOR-CLON [Concomitant]
  7. DIVALPROEX EXTENDED-RELEASE [Concomitant]
  8. ROPINIROLE HYDROCHLORIDE [Concomitant]
  9. LUNESTA [Concomitant]
  10. ALPRAZOLAM [Concomitant]
  11. COMBIVENT (ALBUTEROL/IPRATROPIUM) [Concomitant]
  12. SIMVASTATIN [Concomitant]
  13. DEXILANT (DEXLANSOPRAZOLE) ER [Concomitant]
  14. MIRTAZAPINE [Concomitant]
  15. PRIMIDONE [Concomitant]
  16. FENTANYL [Suspect]
     Indication: SPINAL COLUMN INJURY
     Dosage: 1 PATCH;Q2D;TDER
     Route: 062
     Dates: start: 20111025, end: 20111119
  17. ADVAIR DISK (FLUTICASONE/SALMETEROL) 500/50 [Concomitant]
  18. DEPAKOTE [Concomitant]
  19. ENDOCET (ACETAMINOPHEN AND OXYCODONE) [Concomitant]
  20. ZOLPIDEM [Concomitant]
  21. AMPHETAMINE AND DEXTROAMPHETAMINE SALTS [Concomitant]
  22. TESTOSTERONE DEPOT 200 MG [Concomitant]
  23. TIGAN [Concomitant]
  24. BENZTROPINE MESYLATE [Concomitant]
  25. LISINOPRIL [Concomitant]
  26. AMPHETAMINE AND DEXTROAMPHETAMINE SALTS [Concomitant]
  27. ASPIRIN [Concomitant]

REACTIONS (11)
  - DYSARTHRIA [None]
  - COORDINATION ABNORMAL [None]
  - DEVICE LEAKAGE [None]
  - MEMORY IMPAIRMENT [None]
  - MOUTH INJURY [None]
  - LIP INJURY [None]
  - FALL [None]
  - ACCIDENTAL EXPOSURE [None]
  - HYPERSOMNIA [None]
  - PRODUCT QUALITY ISSUE [None]
  - HAEMORRHAGE [None]
